FAERS Safety Report 7548441-8 (Version None)
Quarter: 2011Q2

REPORT INFORMATION
  Report Type: 
  Country: None (occurrence: None)
  Receive Date: 20110615
  Receipt Date: 20110601
  Transmission Date: 20111010
  Serious: Yes (Other)
  Sender: FDA-Public Use
  Company Number: US-ELI_LILLY_AND_COMPANY-US201004006915

PATIENT
  Sex: Female

DRUGS (18)
  1. FORTEO [Suspect]
     Dosage: 20 UG, QD
     Route: 058
  2. FORTEO [Suspect]
     Indication: OSTEOPOROSIS
     Dosage: 20 UG, DAILY (1/D)
     Route: 058
     Dates: start: 20080801
  3. BENAZEPRIL HYDROCHLORIDE [Concomitant]
     Indication: BLOOD PRESSURE
  4. ALPHA LIPOIC ACID [Concomitant]
  5. NIACIN [Concomitant]
  6. FLUTICASONE PROPIONATE [Concomitant]
     Indication: HYPERSENSITIVITY
  7. VITAMIN B-12 [Concomitant]
  8. NEXIUM [Concomitant]
  9. PRAVASTATIN [Concomitant]
  10. CARBAMAZEPINE [Concomitant]
     Indication: NEUROPATHY PERIPHERAL
  11. FERROUS SULFATE TAB [Concomitant]
  12. COREG [Concomitant]
  13. PRAMIPEXOLE DIHYDROCHLORIDE [Concomitant]
     Indication: RESTLESS LEGS SYNDROME
  14. VITAMIN E [Concomitant]
     Dosage: 800 MG, UNK
  15. FORTEO [Suspect]
     Dosage: 20 UG, QD
     Route: 058
  16. AMLODIPINE [Concomitant]
  17. VITAMIN D [Concomitant]
  18. C-VITAMIN [Concomitant]

REACTIONS (12)
  - CARPAL TUNNEL SYNDROME [None]
  - ASTHENIA [None]
  - MUSCULOSKELETAL CHEST PAIN [None]
  - PELVIC FRACTURE [None]
  - MITRAL VALVE PROLAPSE [None]
  - SPINAL FRACTURE [None]
  - MITRAL VALVE INCOMPETENCE [None]
  - POST PROCEDURAL HAEMORRHAGE [None]
  - RIB FRACTURE [None]
  - CATHETER SITE HAEMATOMA [None]
  - FALL [None]
  - BONE PAIN [None]
